FAERS Safety Report 6026258-3 (Version None)
Quarter: 2008Q4

REPORT INFORMATION
  Report Type: 
  Country: None (occurrence: None)
  Receive Date: 20081230
  Receipt Date: 20081216
  Transmission Date: 20090506
  Serious: Yes (Life-Threatening)
  Sender: FDA-Public Use
  Company Number: 005286

PATIENT
  Sex: Female

DRUGS (3)
  1. BUSULFEX [Suspect]
     Indication: STEM CELL TRANSPLANT
     Dosage: 0.8 MG/KG, QID
     Route: 042
     Dates: start: 20070831, end: 20070903
  2. PHEYTOIN (PHENYTOIN) [Concomitant]
  3. CYCLOSPORINE [Concomitant]

REACTIONS (2)
  - CAPILLARY LEAK SYNDROME [None]
  - GAMMA-GLUTAMYLTRANSFERASE INCREASED [None]
